FAERS Safety Report 7634804-9 (Version None)
Quarter: 2011Q3

REPORT INFORMATION
  Report Type: 
  Country: None (occurrence: None)
  Receive Date: 20110726
  Receipt Date: 20110714
  Transmission Date: 20111222
  Serious: No
  Sender: FDA-Public Use
  Company Number: US-BIOGENIDEC-2011BI025582

PATIENT
  Age: 36 Year
  Sex: Female

DRUGS (1)
  1. TYSABRI [Suspect]
     Indication: MULTIPLE SCLEROSIS
     Route: 042
     Dates: start: 20110211

REACTIONS (8)
  - HYPERTENSION [None]
  - MIGRAINE [None]
  - VISUAL IMPAIRMENT [None]
  - HEART RATE DECREASED [None]
  - VOMITING [None]
  - CHEST PAIN [None]
  - DYSPHONIA [None]
  - ALOPECIA [None]
